FAERS Safety Report 12527948 (Version 1)
Quarter: 2016Q3

REPORT INFORMATION
  Report Type: Spontaneous
  Country: US (occurrence: US)
  Receive Date: 20160705
  Receipt Date: 20160705
  Transmission Date: 20161109
  Serious: No
  Sender: FDA-Public Use
  Company Number: US-BAYER-2016-125450

PATIENT
  Age: 50 Year
  Sex: Female

DRUGS (3)
  1. CLIMARA PRO [Suspect]
     Active Substance: ESTRADIOL\LEVONORGESTREL
     Indication: POOR QUALITY SLEEP
  2. CLIMARA PRO [Suspect]
     Active Substance: ESTRADIOL\LEVONORGESTREL
     Indication: HOT FLUSH
     Dosage: UNK
     Route: 062
  3. CLIMARA PRO [Suspect]
     Active Substance: ESTRADIOL\LEVONORGESTREL
     Indication: ORAL DISCOMFORT

REACTIONS (7)
  - Poor quality sleep [None]
  - Hyperhidrosis [None]
  - Product adhesion issue [None]
  - Feeling hot [None]
  - Hot flush [None]
  - Oral discomfort [None]
  - Drug ineffective [None]
